FAERS Safety Report 12317190 (Version 1)
Quarter: 2016Q2

REPORT INFORMATION
  Report Type: Spontaneous
  Country: US (occurrence: US)
  Receive Date: 20160429
  Receipt Date: 20160429
  Transmission Date: 20160815
  Serious: No
  Sender: FDA-Public Use
  Company Number: US-009507513-1604USA016699

PATIENT
  Age: 51 Year
  Sex: Female
  Weight: 58.96 kg

DRUGS (3)
  1. XANAX [Concomitant]
     Active Substance: ALPRAZOLAM
     Dosage: 2 TABLETS DURING THE DAY BEFORE GOING TO SLEEP
  2. BELSOMRA [Suspect]
     Active Substance: SUVOREXANT
     Indication: SLEEP PHASE RHYTHM DISTURBANCE
     Dosage: 1 TABLET/BEFORE BEDTIME
     Route: 048
     Dates: start: 20160422, end: 20160424
  3. DEXTROAMPHETAMINE. [Concomitant]
     Active Substance: DEXTROAMPHETAMINE
     Dosage: ONCE A DAY

REACTIONS (2)
  - Product use issue [Unknown]
  - Drug ineffective for unapproved indication [Unknown]

NARRATIVE: CASE EVENT DATE: 20160422
